FAERS Safety Report 13823693 (Version 2)
Quarter: 2017Q3

REPORT INFORMATION
  Report Type: Spontaneous
  Country: CZ (occurrence: CZ)
  Receive Date: 20170802
  Receipt Date: 20170804
  Transmission Date: 20171127
  Serious: Yes (Life-Threatening, Other)
  Sender: FDA-Public Use
  Company Number: CZ-B.I. PHARMACEUTICALS,INC./RIDGEFIELD-2017-42-000010

PATIENT
  Age: 19 Year
  Sex: Female

DRUGS (3)
  1. AGGRENOX [Suspect]
     Active Substance: ASPIRIN\DIPYRIDAMOLE
     Indication: SUICIDE ATTEMPT
     Route: 065
     Dates: start: 20140831, end: 20140831
  2. DEXTROMETHORFAN [Suspect]
     Active Substance: DEXTROMETHORPHAN
     Indication: SUICIDE ATTEMPT
     Route: 048
     Dates: start: 20140831, end: 20140831
  3. PARACETAMOLUM [Suspect]
     Active Substance: ACETAMINOPHEN
     Indication: SUICIDE ATTEMPT
     Route: 048
     Dates: start: 20140831, end: 20140831

REACTIONS (3)
  - Overdose [Unknown]
  - Suicide attempt [Unknown]
  - Intentional product misuse [Unknown]
